FAERS Safety Report 6902372-2 (Version None)
Quarter: 2010Q3

REPORT INFORMATION
  Report Type: 
  Country: None (occurrence: None)
  Receive Date: 20100803
  Receipt Date: 20080521
  Transmission Date: 20110219
  Serious: Yes (Other)
  Sender: FDA-Public Use
  Company Number: US-PFIZER INC-2008007465

PATIENT
  Sex: Female
  Weight: 86 kg

DRUGS (6)
  1. LYRICA [Suspect]
     Indication: HEADACHE
     Dates: start: 20071201, end: 20080520
  2. LYRICA [Suspect]
     Indication: HEAD DISCOMFORT
  3. LYRICA [Suspect]
     Indication: PAIN
  4. ANTIHYPERTENSIVES [Concomitant]
  5. ANTIINFLAMMATORY/ANTIRHEUMATIC PRODUCTS [Concomitant]
  6. ANXIOLYTICS [Concomitant]

REACTIONS (18)
  - ABDOMINAL DISTENSION [None]
  - ASTHENIA [None]
  - CONCUSSION [None]
  - DIZZINESS [None]
  - DYSPNOEA [None]
  - FALL [None]
  - FATIGUE [None]
  - FEELING ABNORMAL [None]
  - GAIT DISTURBANCE [None]
  - HEADACHE [None]
  - IMPAIRED DRIVING ABILITY [None]
  - INCREASED APPETITE [None]
  - SOMNOLENCE [None]
  - SPEECH DISORDER [None]
  - SWELLING [None]
  - VISUAL ACUITY REDUCED [None]
  - VISUAL IMPAIRMENT [None]
  - WEIGHT INCREASED [None]
